FAERS Safety Report 7358438-9 (Version None)
Quarter: 2011Q1

REPORT INFORMATION
  Report Type: 
  Country: None (occurrence: None)
  Receive Date: 20110307
  Receipt Date: 20110222
  Transmission Date: 20110831
  Serious: Yes (Hospitalization, Other)
  Sender: FDA-Public Use
  Company Number: 026772

PATIENT
  Sex: Female

DRUGS (3)
  1. CIMZIA [Suspect]
     Indication: CROHN'S DISEASE
     Dosage: SUBCUTANEOUS
     Route: 058
     Dates: start: 20090601
  2. BENADRYL [Concomitant]
  3. TYLENOL (CAPLET) [Concomitant]

REACTIONS (12)
  - DIALYSIS [None]
  - DRUG HYPERSENSITIVITY [None]
  - ARTHRALGIA [None]
  - RESUSCITATION [None]
  - HYPOTENSION [None]
  - BLOOD GLUCOSE DECREASED [None]
  - RENAL FAILURE [None]
  - HEADACHE [None]
  - PYREXIA [None]
  - SURGERY [None]
  - MIGRAINE [None]
  - APNOEA [None]
